FAERS Safety Report 4510925-4 (Version None)
Quarter: 2004Q4

REPORT INFORMATION
  Report Type: 
  Country: None (occurrence: None)
  Receive Date: 20041025
  Receipt Date: 20031219
  Transmission Date: 20050328
  Serious: Yes (Life-Threatening, Hospitalization, Other)
  Sender: FDA-Public Use
  Company Number: NSADSS2002046095

PATIENT
  Age: 60 Year
  Sex: Female

DRUGS (5)
  1. REMICADE [Suspect]
     Indication: POLYARTHRITIS
     Dosage: 1 IN 1 AS NECESSARY, INTRAVENOUS DRIP
     Route: 041
  2. PREDNISONE [Concomitant]
  3. METHOTREXATE [Concomitant]
  4. VIOXX [Concomitant]
  5. FOSAMAX [Concomitant]

REACTIONS (1)
  - PNEUMOCYSTIS CARINII INFECTION [None]
